FAERS Safety Report 5439516-8 (Version None)
Quarter: 2007Q3

REPORT INFORMATION
  Report Type: 
  Country: None (occurrence: None)
  Receive Date: 20070831
  Receipt Date: 20070821
  Transmission Date: 20080115
  Serious: Yes (Other)
  Sender: FDA-Public Use
  Company Number: JP-ROCHE-513242

PATIENT
  Age: 24 Month
  Sex: Female

DRUGS (1)
  1. ROCEPHIN [Suspect]
     Route: 041
     Dates: start: 20070802, end: 20070818

REACTIONS (1)
  - CHOLELITHIASIS [None]
